FAERS Safety Report 6702024-8 (Version None)
Quarter: 2010Q2

REPORT INFORMATION
  Report Type: 
  Country: None (occurrence: None)
  Receive Date: 20100429
  Receipt Date: 20100421
  Transmission Date: 20101027
  Serious: Yes (Other)
  Sender: FDA-Public Use
  Company Number: IT-PFIZER INC-2010050842

PATIENT
  Age: 22 Year
  Sex: Male

DRUGS (3)
  1. ZELDOX [Suspect]
     Indication: PSYCHOTIC DISORDER
     Dosage: 80 MG, UNK
     Route: 048
     Dates: start: 20100312, end: 20100313
  2. ZELDOX [Suspect]
     Dosage: 160 MG, DAILY
     Route: 048
     Dates: start: 20100314, end: 20100314
  3. ZYPREXA [Concomitant]
     Dosage: 2.5 MG
     Route: 048

REACTIONS (6)
  - CHEST PAIN [None]
  - COLD SWEAT [None]
  - CONFUSIONAL STATE [None]
  - DIPLOPIA [None]
  - PRESYNCOPE [None]
  - SENSE OF OPPRESSION [None]
